FAERS Safety Report 16321578 (Version 1)
Quarter: 2019Q2

REPORT INFORMATION
  Report Type: Spontaneous
  Country: US (occurrence: US)
  Receive Date: 20190410
  Receipt Date: 20190410
  Transmission Date: 20190711
  Serious: Yes (Life-Threatening, Hospitalization, Disabling)
  Sender: FDA-Public Use
  Company Number: None

PATIENT
  Age: 23 Year
  Sex: Male

DRUGS (5)
  1. PURUS LABS ORGAN SHIELD [Suspect]
     Active Substance: DIETARY SUPPLEMENT
  2. OSPANNE [Concomitant]
  3. LIGANDROL LGD-4033 [Suspect]
     Active Substance: VK-5211
  4. YK-11. [Suspect]
     Active Substance: YK-11
  5. OXYDYNAMIC FAT SCORCHER [Suspect]
     Active Substance: DIETARY SUPPLEMENT

REACTIONS (2)
  - Hepatic failure [None]
  - Liver transplant [None]

NARRATIVE: CASE EVENT DATE: 20180415
